FAERS Safety Report 13919383 (Version 1)
Quarter: 2017Q3

REPORT INFORMATION
  Report Type: Spontaneous
  Country: US (occurrence: None)
  Receive Date: 20170828
  Receipt Date: 20170828
  Transmission Date: 20171127
  Serious: No
  Sender: FDA-Public Use
  Company Number: None

PATIENT
  Age: 57 Year
  Sex: Male

DRUGS (1)
  1. IXEKIZUMAB [Suspect]
     Active Substance: IXEKIZUMAB
     Route: 058
     Dates: start: 20170505, end: 20170621

REACTIONS (1)
  - Pruritus [None]

NARRATIVE: CASE EVENT DATE: 20170621
